FAERS Safety Report 11178170 (Version 6)
Quarter: 2015Q4

REPORT INFORMATION
  Report Type: Report from Study
  Country: US (occurrence: US)
  Receive Date: 20150610
  Receipt Date: 20151112
  Transmission Date: 20160304
  Serious: Yes (Hospitalization, Other)
  Sender: FDA-Public Use
  Company Number: US-IPSEN BIOPHARMACEUTICALS, INC.-2015-5425

PATIENT
  Age: 9 Year
  Sex: Female
  Weight: 19 kg

DRUGS (15)
  1. MIRALAX [Concomitant]
     Active Substance: POLYETHYLENE GLYCOL 3350
     Indication: PRODUCT USED FOR UNKNOWN INDICATION
  2. INCRELEX [Suspect]
     Active Substance: MECASERMIN
     Indication: RETT^S DISORDER
     Route: 065
     Dates: start: 20140514, end: 20141002
  3. INCRELEX [Suspect]
     Active Substance: MECASERMIN
     Indication: PRODUCT USE ISSUE
     Route: 065
     Dates: start: 20150417, end: 20150522
  4. INCRELEX [Suspect]
     Active Substance: MECASERMIN
     Route: 065
     Dates: start: 20150807
  5. LAX-A-DAY [Concomitant]
     Route: 065
  6. ONFI [Concomitant]
     Active Substance: CLOBAZAM
     Indication: PRODUCT USED FOR UNKNOWN INDICATION
     Dosage: 10 MG
  7. DEPAKENE [Concomitant]
     Active Substance: VALPROIC ACID
     Indication: PRODUCT USED FOR UNKNOWN INDICATION
     Route: 065
     Dates: start: 20130601
  8. FRISIUM [Concomitant]
     Active Substance: CLOBAZAM
     Route: 065
     Dates: start: 20150522
  9. ZANTAC [Concomitant]
     Active Substance: RANITIDINE HYDROCHLORIDE
     Indication: PRODUCT USED FOR UNKNOWN INDICATION
     Route: 065
     Dates: start: 20150609
  10. FRISIUM [Concomitant]
     Active Substance: CLOBAZAM
     Route: 065
     Dates: start: 20150623
  11. PREVACID [Concomitant]
     Active Substance: LANSOPRAZOLE
     Indication: PRODUCT USED FOR UNKNOWN INDICATION
     Route: 065
     Dates: start: 20140401
  12. VITAMIN D3 [Concomitant]
     Active Substance: CHOLECALCIFEROL
     Indication: PRODUCT USED FOR UNKNOWN INDICATION
     Route: 065
     Dates: start: 2011
  13. INCRELEX [Suspect]
     Active Substance: MECASERMIN
     Route: 065
     Dates: start: 201505, end: 20150804
  14. FRISIUM [Concomitant]
     Active Substance: CLOBAZAM
     Indication: PRODUCT USED FOR UNKNOWN INDICATION
     Route: 065
     Dates: start: 201409, end: 20150522
  15. LAX-A-DAY [Concomitant]
     Indication: PRODUCT USED FOR UNKNOWN INDICATION
     Dosage: 17GM
     Route: 065
     Dates: start: 2009

REACTIONS (6)
  - Atelectasis [None]
  - Seizure [Unknown]
  - Drug dose omission [None]
  - Pneumonia [Recovered/Resolved]
  - Pneumonia aspiration [Recovering/Resolving]
  - Drug hypersensitivity [None]

NARRATIVE: CASE EVENT DATE: 20150205
